FAERS Safety Report 24370667 (Version 1)
Quarter: 2024Q3

REPORT INFORMATION
  Report Type: Spontaneous
  Country: US (occurrence: US)
  Receive Date: 20240927
  Receipt Date: 20240927
  Transmission Date: 20241016
  Serious: No
  Sender: RECKITT BENCKISER
  Company Number: US-INDIVIOR US-INDV-141795-2023

PATIENT
  Age: 30 Year
  Sex: Male

DRUGS (5)
  1. PERSERIS [Suspect]
     Active Substance: RISPERIDONE
     Indication: Schizophrenia
     Dosage: 90 MILLIGRAM, QMO
     Route: 058
     Dates: start: 20231102
  2. PERSERIS [Suspect]
     Active Substance: RISPERIDONE
  3. HALOPERIDOL [Concomitant]
     Active Substance: HALOPERIDOL
     Indication: Affective disorder
     Dosage: 5 MILLIGRAM, PRN
     Route: 065
  4. BENADRYL [Concomitant]
     Active Substance: DIPHENHYDRAMINE HYDROCHLORIDE
     Indication: Affective disorder
     Dosage: 50 MILLIGRAM, PRN
     Route: 065
  5. ATIVAN [Concomitant]
     Active Substance: LORAZEPAM
     Indication: Affective disorder
     Dosage: 2 MILLIGRAM, PRN
     Route: 065

REACTIONS (1)
  - Schizophrenia [Recovering/Resolving]

NARRATIVE: CASE EVENT DATE: 20231101
